FAERS Safety Report 21041936 (Version 1)
Quarter: 2022Q3

REPORT INFORMATION
  Report Type: Report from Study
  Country: US (occurrence: US)
  Receive Date: 20220705
  Receipt Date: 20220705
  Transmission Date: 20221026
  Serious: Yes (Hospitalization, Other)
  Sender: FDA-Public Use
  Company Number: US-NOVARTISPH-NVSC2022US042755

PATIENT
  Age: 81 Year
  Sex: Male

DRUGS (29)
  1. ENTRESTO [Suspect]
     Active Substance: SACUBITRIL\VALSARTAN
     Indication: Cardiac failure congestive
     Dosage: 1 DOSAGE FORM, BID (1 PILL A DAY)
     Route: 048
     Dates: start: 20210401
  2. DIPRIVAN [Concomitant]
     Active Substance: PROPOFOL
     Indication: Product used for unknown indication
     Dosage: 200 MG, PRN
     Route: 042
     Dates: start: 20220208, end: 20220208
  3. NORCURON [Concomitant]
     Active Substance: VECURONIUM BROMIDE
     Indication: Product used for unknown indication
     Dosage: 100 MG, PRN
     Route: 042
     Dates: start: 20220208, end: 20220208
  4. NORCURON [Concomitant]
     Active Substance: VECURONIUM BROMIDE
     Dosage: 2 MG, TID
     Route: 042
     Dates: start: 20220208
  5. ZOFRAN [Concomitant]
     Active Substance: ONDANSETRON HYDROCHLORIDE
     Indication: Product used for unknown indication
     Dosage: 4 MG, PRN
     Route: 042
     Dates: start: 20220208, end: 20220208
  6. VECURONIUM [Concomitant]
     Active Substance: VECURONIUM BROMIDE
     Indication: Product used for unknown indication
     Dosage: 6 MG, PRN
     Route: 042
     Dates: start: 20220208, end: 20220208
  7. NOREPINEPHRINE [Concomitant]
     Active Substance: NOREPINEPHRINE
     Indication: Product used for unknown indication
     Dosage: 16.250 MCG/ML, PRN
     Route: 042
     Dates: start: 20220208, end: 20220208
  8. SUGAMMADEX [Concomitant]
     Active Substance: SUGAMMADEX
     Indication: Product used for unknown indication
     Dosage: 200 MG, PRN
     Route: 042
     Dates: start: 20220208, end: 20220208
  9. MORPHINE [Concomitant]
     Active Substance: MORPHINE
     Indication: Product used for unknown indication
     Dosage: 4 MG, PRN
     Route: 042
     Dates: start: 20220208, end: 20220208
  10. LACTATED RINGERS SOLUTION [Concomitant]
     Active Substance: CALCIUM CHLORIDE\POTASSIUM CHLORIDE\SODIUM CHLORIDE\SODIUM LACTATE
     Indication: Product used for unknown indication
     Dosage: 800 ML, PRN
     Route: 042
     Dates: start: 20220208, end: 20220208
  11. LACTATED RINGERS SOLUTION [Concomitant]
     Active Substance: CALCIUM CHLORIDE\POTASSIUM CHLORIDE\SODIUM CHLORIDE\SODIUM LACTATE
     Dosage: 200 UNK
     Route: 065
  12. ANCEF [Concomitant]
     Active Substance: CEFAZOLIN SODIUM
     Indication: Product used for unknown indication
     Dosage: 2000 MG, PRN
     Route: 042
     Dates: start: 20220208, end: 20220208
  13. SUBLIMAZE [Concomitant]
     Active Substance: FENTANYL CITRATE
     Indication: Product used for unknown indication
     Dosage: 100 UG, PRN
     Route: 042
     Dates: start: 20220208
  14. LIDOCAINE [Concomitant]
     Active Substance: LIDOCAINE
     Indication: Product used for unknown indication
     Dosage: 50 MG, PRN
     Route: 042
     Dates: start: 20220208, end: 20220208
  15. COLACE [Concomitant]
     Active Substance: DOCUSATE SODIUM
     Indication: Product used for unknown indication
     Dosage: 100 MG, BID
     Route: 048
  16. ROXICODONE [Concomitant]
     Active Substance: OXYCODONE HYDROCHLORIDE
     Indication: Pain
     Dosage: 1 DOSAGE FORM, Q6H
     Route: 048
     Dates: start: 20220208
  17. GLUCOPHAGE [Concomitant]
     Active Substance: METFORMIN HYDROCHLORIDE
     Indication: Product used for unknown indication
     Dosage: 1 DOSAGE FORM, BID
     Route: 048
     Dates: start: 20211220
  18. TYLENOL [Concomitant]
     Active Substance: ACETAMINOPHEN
     Indication: Pain
     Dosage: 2 DOSAGE FORM, Q8H (1000MG)
     Route: 048
     Dates: start: 20211220
  19. LIPITOR [Concomitant]
     Active Substance: ATORVASTATIN CALCIUM
     Indication: Product used for unknown indication
     Route: 065
  20. DULCOLAX NOS [Concomitant]
     Active Substance: BISACODYL OR DOCUSATE SODIUM
     Indication: Constipation
     Dosage: 1 DOSAGE FORM (AS NEEDED)
     Route: 054
     Dates: start: 20211220
  21. CHOLECALCIFEROL [Concomitant]
     Active Substance: CHOLECALCIFEROL
     Indication: Product used for unknown indication
     Route: 065
  22. LASIX [Concomitant]
     Active Substance: FUROSEMIDE
     Indication: Product used for unknown indication
     Dosage: 20 MG, QD
     Route: 048
  23. MAGNESIUM OXIDE [Concomitant]
     Active Substance: MAGNESIUM OXIDE
     Indication: Product used for unknown indication
     Dosage: UNK
     Route: 065
  24. METOPROLOL [Concomitant]
     Active Substance: METOPROLOL
     Indication: Product used for unknown indication
     Route: 065
  25. NITROGLYCERIN [Concomitant]
     Active Substance: NITROGLYCERIN
     Indication: Product used for unknown indication
     Route: 065
  26. CALCIUM [Concomitant]
     Active Substance: CALCIUM
     Indication: Product used for unknown indication
     Route: 048
  27. ASPIRIN [Concomitant]
     Active Substance: ASPIRIN
     Indication: Product used for unknown indication
     Route: 065
  28. GLYCOLAX [Concomitant]
     Active Substance: POLYETHYLENE GLYCOL 3350
     Indication: Product used for unknown indication
     Dosage: 1 DOSAGE FORM, QD
     Route: 048
     Dates: start: 20211221
  29. SENOKOT [Concomitant]
     Active Substance: SENNOSIDES
     Indication: Product used for unknown indication
     Dosage: 2 DOSAGE FORM, QD (AT BED TIME)
     Route: 065
     Dates: start: 20211220

REACTIONS (11)
  - Renal neoplasm [Unknown]
  - Cardiac failure congestive [Unknown]
  - Mitral valve incompetence [Unknown]
  - Tricuspid valve incompetence [Unknown]
  - Endocardial disease [Unknown]
  - Left ventricular dysfunction [Unknown]
  - Pulmonary valve incompetence [Unknown]
  - Nephrosclerosis [Unknown]
  - Cellulitis [Unknown]
  - Mobility decreased [Unknown]
  - Asthenia [Unknown]

NARRATIVE: CASE EVENT DATE: 20220201
